FAERS Safety Report 9442567 (Version 1)
Quarter: 2013Q3

REPORT INFORMATION
  Report Type: Spontaneous
  Country: US (occurrence: US)
  Receive Date: 20130806
  Receipt Date: 20130806
  Transmission Date: 20140515
  Serious: Yes (Other)
  Sender: FDA-Public Use
  Company Number: US-JNJFOC-20130801928

PATIENT
  Age: 68 Year
  Sex: Male
  Weight: 79.38 kg

DRUGS (7)
  1. XARELTO [Suspect]
     Indication: CEREBROVASCULAR ACCIDENT PROPHYLAXIS
     Route: 048
     Dates: start: 20130422, end: 20130729
  2. XARELTO [Suspect]
     Indication: CEREBROVASCULAR ACCIDENT PROPHYLAXIS
     Dosage: HALF TABLET OF 20 MG
     Route: 048
     Dates: start: 20130730
  3. XARELTO [Suspect]
     Indication: ATRIAL FIBRILLATION
     Dosage: HALF TABLET OF 20 MG
     Route: 048
     Dates: start: 20130730
  4. XARELTO [Suspect]
     Indication: ATRIAL FIBRILLATION
     Route: 048
     Dates: start: 20130422, end: 20130729
  5. ASPIRIN [Concomitant]
     Route: 048
     Dates: start: 2012
  6. LISINOPRIL [Concomitant]
     Indication: BLOOD PRESSURE
     Route: 048
     Dates: start: 2011
  7. LIPITOR [Concomitant]
     Indication: BLOOD CHOLESTEROL
     Route: 048
     Dates: start: 2012

REACTIONS (4)
  - Urinary tract infection bacterial [Unknown]
  - Blood urine present [Not Recovered/Not Resolved]
  - Drug prescribing error [Not Recovered/Not Resolved]
  - Wrong technique in drug usage process [Not Recovered/Not Resolved]
